FAERS Safety Report 6139734-X (Version None)
Quarter: 2009Q2

REPORT INFORMATION
  Report Type: 
  Country: None (occurrence: None)
  Receive Date: 20090401
  Receipt Date: 20090327
  Transmission Date: 20091009
  Serious: Yes (Congenital Anomaly, Other)
  Sender: FDA-Public Use
  Company Number: DE-AVENTIS-200910207DE

PATIENT
  Sex: Male

DRUGS (2)
  1. CLEXANE [Suspect]
     Indication: THROMBOSIS PROPHYLAXIS
     Dosage: DOSE: NOT REPORTED
     Route: 058
     Dates: start: 20081101, end: 20080101
  2. CREON [Suspect]
     Indication: DRUG USE FOR UNKNOWN INDICATION
     Dosage: DOSE: NOT REPORTED

REACTIONS (4)
  - DRUG EXPOSURE DURING PREGNANCY [None]
  - REFLUX NEPHROPATHY [None]
  - RENAL HYPOPLASIA [None]
  - RENAL IMPAIRMENT [None]
